FAERS Safety Report 5713119-X (Version None)
Quarter: 2008Q2

REPORT INFORMATION
  Report Type: 
  Country: None (occurrence: None)
  Receive Date: 20080422
  Receipt Date: 20070424
  Transmission Date: 20081010
  Serious: No
  Sender: FDA-Public Use
  Company Number: US-BRISTOL-MYERS SQUIBB COMPANY-13758586

PATIENT
  Sex: Female

DRUGS (5)
  1. HYDREA [Suspect]
     Indication: PLATELET COUNT INCREASED
     Route: 048
     Dates: start: 20070208
  2. ZETIA [Concomitant]
  3. ZOLOFT [Concomitant]
  4. SYNTHROID [Concomitant]
  5. ASPIRIN [Concomitant]

REACTIONS (5)
  - COUGH [None]
  - DYSPNOEA EXERTIONAL [None]
  - HEART RATE INCREASED [None]
  - HEART RATE IRREGULAR [None]
  - RESPIRATORY TRACT CONGESTION [None]
